FAERS Safety Report 7461561-1 (Version None)
Quarter: 2011Q2

REPORT INFORMATION
  Report Type: 
  Country: None (occurrence: None)
  Receive Date: 20110506
  Receipt Date: 20110422
  Transmission Date: 20111010
  Serious: Yes (Hospitalization)
  Sender: FDA-Public Use
  Company Number: US-JNJFOC-20110411572

PATIENT
  Sex: Female
  Weight: 64.86 kg

DRUGS (9)
  1. FENTANYL-100 [Suspect]
     Indication: BACK PAIN
     Dosage: NDC#: 0781-7111-55
     Route: 062
  2. TRAZODONE [Concomitant]
     Indication: SLEEP DISORDER
     Route: 048
  3. XANAX [Concomitant]
     Indication: ANXIETY
     Dosage: ONE HALF A TABLET AS NEEDED
     Route: 048
  4. ROZEREM [Concomitant]
     Indication: SLEEP DISORDER
     Route: 048
  5. FLEXERIL [Concomitant]
     Indication: BACK PAIN
     Route: 048
  6. VENLAFAXINE [Concomitant]
     Indication: DEPRESSION
     Route: 048
  7. FUROSEMIDE [Concomitant]
     Indication: FLUID RETENTION
     Dosage: ONCE A MONTH AS NECESSARY
     Route: 048
  8. ATENOLOL [Concomitant]
     Indication: HEART RATE ABNORMAL
     Route: 048
  9. ATENOLOL [Concomitant]
     Indication: HYPERTENSION
     Route: 048

REACTIONS (2)
  - HOSPITALISATION [None]
  - DRUG INEFFECTIVE [None]
